FAERS Safety Report 18948589 (Version 1)
Quarter: 2021Q1

REPORT INFORMATION
  Report Type: Spontaneous
  Country: US (occurrence: US)
  Receive Date: 20210226
  Receipt Date: 20210226
  Transmission Date: 20210420
  Serious: No
  Sender: FDA-Public Use
  Company Number: US-ROCHE-2584375

PATIENT
  Sex: Female
  Weight: 110.32 kg

DRUGS (5)
  1. MOMETASONE [Concomitant]
     Active Substance: MOMETASONE
  2. AUVI?Q [Concomitant]
     Active Substance: EPINEPHRINE
  3. BYSTOLIC [Concomitant]
     Active Substance: NEBIVOLOL HYDROCHLORIDE
  4. XOLAIR [Suspect]
     Active Substance: OMALIZUMAB
     Indication: CARDIAC FAILURE
     Route: 058
     Dates: start: 20191008
  5. LEVOCETIRIZINE [Concomitant]
     Active Substance: LEVOCETIRIZINE

REACTIONS (3)
  - No adverse event [Unknown]
  - Off label use [Unknown]
  - Intentional product use issue [Unknown]
